FAERS Safety Report 8190580-5 (Version None)
Quarter: 2012Q1

REPORT INFORMATION
  Report Type: 
  Country: None (occurrence: None)
  Receive Date: 20120305
  Receipt Date: 20120223
  Transmission Date: 20120608
  Serious: Yes (Hospitalization)
  Sender: FDA-Public Use
  Company Number: AUR-APL-2012-01106

PATIENT
  Age: 89 Year
  Sex: Female
  Weight: 64.5 kg

DRUGS (4)
  1. ASPIRIN [Concomitant]
  2. GLICLAZIDE (GLICLAZIDE) [Concomitant]
  3. ROSUVASTATIN [Concomitant]
  4. METFORMIN HCL [Suspect]
     Indication: PRODUCT USED FOR UNKNOWN INDICATION
     Dosage: ORAL
     Route: 048
     Dates: end: 20120105

REACTIONS (5)
  - WHITE BLOOD CELL COUNT INCREASED [None]
  - BASE EXCESS [None]
  - HAEMATEMESIS [None]
  - BLOOD CREATININE INCREASED [None]
  - LACTIC ACIDOSIS [None]
